FAERS Safety Report 6573940-5 (Version None)
Quarter: 2010Q1

REPORT INFORMATION
  Report Type: 
  Country: None (occurrence: None)
  Receive Date: 20100208
  Receipt Date: 20100128
  Transmission Date: 20100710
  Serious: Yes (Other)
  Sender: FDA-Public Use
  Company Number: ES-PFIZER INC-2010011573

PATIENT
  Age: 65 Year
  Sex: Male

DRUGS (1)
  1. CARDURA [Suspect]
     Indication: HYPERTENSION
     Dosage: 8 MG, UNK

REACTIONS (1)
  - URINARY RETENTION [None]
